FAERS Safety Report 13016531 (Version 3)
Quarter: 2020Q4

REPORT INFORMATION
  Report Type: Spontaneous
  Country: US (occurrence: US)
  Receive Date: 20161212
  Receipt Date: 20201013
  Transmission Date: 20210113
  Serious: Yes (Death, Hospitalization)
  Sender: FDA-Public Use
  Company Number: US-JNJFOC-20161110182

PATIENT
  Age: 58 Year
  Sex: Female

DRUGS (3)
  1. XARELTO [Suspect]
     Active Substance: RIVAROXABAN
     Indication: ATRIAL FIBRILLATION
  2. XARELTO [Suspect]
     Active Substance: RIVAROXABAN
     Indication: THROMBOSIS PROPHYLAXIS
  3. XARELTO [Suspect]
     Active Substance: RIVAROXABAN
     Indication: CEREBROVASCULAR ACCIDENT PROPHYLAXIS
     Route: 048
     Dates: start: 20150304, end: 20150926

REACTIONS (7)
  - Gastrointestinal haemorrhage [Unknown]
  - Acute left ventricular failure [Fatal]
  - Coagulopathy [Unknown]
  - Pneumonia [Fatal]
  - Sepsis [Fatal]
  - Sinusitis [Fatal]
  - Liver disorder [Fatal]

NARRATIVE: CASE EVENT DATE: 20150915
